FAERS Safety Report 14987897 (Version 1)
Quarter: 2018Q2

REPORT INFORMATION
  Report Type: Spontaneous
  Country: US (occurrence: US)
  Receive Date: 20180515
  Receipt Date: 20180515
  Transmission Date: 20180711
  Serious: No
  Sender: FDA-Public Use
  Company Number: None

PATIENT
  Sex: Male
  Weight: 80.3 kg

DRUGS (26)
  1. REVLIMID [Suspect]
     Active Substance: LENALIDOMIDE
  2. CHOLECALCIFEROL [Concomitant]
     Active Substance: CHOLECALCIFEROL
  3. COLACE [Concomitant]
     Active Substance: DOCUSATE SODIUM
  4. DUONEB [Concomitant]
     Active Substance: ALBUTEROL SULFATE\IPRATROPIUM BROMIDE
  5. MIRALAX [Concomitant]
     Active Substance: POLYETHYLENE GLYCOL 3350
  6. PEPCID [Concomitant]
     Active Substance: FAMOTIDINE
  7. ATORVASTATIN [Concomitant]
     Active Substance: ATORVASTATIN
  8. NIFEDIPINE. [Concomitant]
     Active Substance: NIFEDIPINE
  9. CALCIUM CARBONATE. [Concomitant]
     Active Substance: CALCIUM CARBONATE
  10. FOLIC ACID. [Concomitant]
     Active Substance: FOLIC ACID
  11. NORCO [Concomitant]
     Active Substance: ACETAMINOPHEN\HYDROCODONE BITARTRATE
  12. CLARITIN [Concomitant]
     Active Substance: LORATADINE
  13. CYANOCOBALAMIN. [Concomitant]
     Active Substance: CYANOCOBALAMIN
  14. GUAIFENESIN. [Concomitant]
     Active Substance: GUAIFENESIN
  15. ONDANSETRON [Concomitant]
     Active Substance: ONDANSETRON
  16. KYPROLIS [Suspect]
     Active Substance: CARFILZOMIB
  17. GABAPENTIN. [Concomitant]
     Active Substance: GABAPENTIN
  18. SALINE FLUSH [Concomitant]
     Active Substance: SODIUM CHLORIDE
  19. VANCOMYCIN [Concomitant]
     Active Substance: VANCOMYCIN
  20. DOCUSATE SODIUM. [Concomitant]
     Active Substance: DOCUSATE SODIUM
  21. HEPARIN [Concomitant]
     Active Substance: HEPARIN SODIUM
  22. METHYLPREDNISOLONE. [Concomitant]
     Active Substance: METHYLPREDNISOLONE
  23. TRIAMCINOLONE [Concomitant]
     Active Substance: TRIAMCINOLONE
  24. DEXAMETHASONE (KRD) [Suspect]
     Active Substance: DEXAMETHASONE
  25. ACETAMINOPHEN. [Concomitant]
     Active Substance: ACETAMINOPHEN
  26. BENADRYL [Concomitant]
     Active Substance: DIPHENHYDRAMINE HYDROCHLORIDE

REACTIONS (4)
  - Swelling face [None]
  - Hypocalcaemia [None]
  - Rash pruritic [None]
  - Lip swelling [None]
